FAERS Safety Report 12875330 (Version 2)
Quarter: 2017Q1

REPORT INFORMATION
  Report Type: Report from Study
  Country: US (occurrence: US)
  Receive Date: 20161024
  Receipt Date: 20170224
  Transmission Date: 20170428
  Serious: Yes (Hospitalization)
  Sender: FDA-Public Use
  Company Number: PHEH2016US027398

PATIENT
  Age: 64 Year
  Sex: Male

DRUGS (3)
  1. COSENTYX [Suspect]
     Active Substance: SECUKINUMAB
     Indication: PSORIASIS
     Dosage: 300 MG, QMO
     Route: 065
     Dates: start: 20160727, end: 20170101
  2. COSENTYX [Suspect]
     Active Substance: SECUKINUMAB
     Indication: PSORIATIC ARTHROPATHY
  3. COSENTYX [Suspect]
     Active Substance: SECUKINUMAB
     Indication: POLYARTHRITIS

REACTIONS (9)
  - Malaise [Recovering/Resolving]
  - Headache [Unknown]
  - Off label use [Unknown]
  - Retching [Recovering/Resolving]
  - Oropharyngeal pain [Unknown]
  - Nausea [Recovering/Resolving]
  - Feeding disorder [Recovering/Resolving]
  - Diarrhoea [Recovering/Resolving]
  - Sleep disorder [Recovering/Resolving]

NARRATIVE: CASE EVENT DATE: 20161017
